FAERS Safety Report 12546889 (Version 1)
Quarter: 2016Q3

REPORT INFORMATION
  Report Type: Report from Study
  Country: CO (occurrence: CO)
  Receive Date: 20160711
  Receipt Date: 20160711
  Transmission Date: 20161109
  Serious: Yes (Death)
  Sender: FDA-Public Use
  Company Number: CO-ABBVIE-16P-036-1673046-00

PATIENT
  Age: 64 Year
  Sex: Male

DRUGS (1)
  1. ZEMPLAR [Suspect]
     Active Substance: PARICALCITOL
     Indication: HYPERPARATHYROIDISM SECONDARY
     Dosage: POST DIALYSIS
     Route: 058
     Dates: start: 20150826, end: 20160624

REACTIONS (8)
  - Liver abscess [Fatal]
  - Respiratory failure [Fatal]
  - Cardio-respiratory arrest [Fatal]
  - Activities of daily living impaired [Fatal]
  - Discomfort [Fatal]
  - Gait disturbance [Fatal]
  - Hepatic infection bacterial [Fatal]
  - Pyrexia [Fatal]

NARRATIVE: CASE EVENT DATE: 20160622
